FAERS Safety Report 9614545 (Version 1)
Quarter: 2013Q4

REPORT INFORMATION
  Report Type: Spontaneous
  Country: None (occurrence: None)
  Receive Date: 20131008
  Receipt Date: 20131008
  Transmission Date: 20140711
  Serious: Yes (Hospitalization, Other)
  Sender: FDA-Public Use
  Company Number: CO-OR-JP-2013-106

PATIENT
  Age: 84 Year
  Sex: Female

DRUGS (2)
  1. PREDNISOLONE [Suspect]
     Indication: MYASTHENIA GRAVIS
  2. CYCLOSPORIN A [Concomitant]

REACTIONS (3)
  - Myasthenia gravis crisis [None]
  - Depression [None]
  - Blood creatinine increased [None]
